FAERS Safety Report 9143975 (Version 1)
Quarter: 2013Q1

REPORT INFORMATION
  Report Type: Spontaneous
  Country: FR (occurrence: FR)
  Receive Date: 20130306
  Receipt Date: 20130306
  Transmission Date: 20140127
  Serious: Yes (Hospitalization)
  Sender: FDA-Public Use
  Company Number: FR-ASTRAZENECA-2013SE13335

PATIENT
  Age: 605 Month
  Sex: Male

DRUGS (6)
  1. BRILIQUE [Suspect]
     Indication: ACUTE MYOCARDIAL INFARCTION
     Route: 048
     Dates: start: 20130214, end: 20130214
  2. BRILIQUE [Suspect]
     Indication: ACUTE MYOCARDIAL INFARCTION
     Route: 048
     Dates: start: 20130215, end: 20130222
  3. KARDEGIC [Concomitant]
     Indication: ACUTE MYOCARDIAL INFARCTION
     Route: 048
     Dates: start: 20130214
  4. LOVENOX [Concomitant]
     Indication: ACUTE MYOCARDIAL INFARCTION
     Route: 058
     Dates: start: 20130214
  5. TAHOR [Concomitant]
     Indication: ACUTE MYOCARDIAL INFARCTION
     Route: 048
     Dates: start: 20130215
  6. DETENSIEL [Concomitant]
     Indication: ACUTE MYOCARDIAL INFARCTION
     Route: 048
     Dates: start: 20130215

REACTIONS (2)
  - Thrombosis in device [Recovered/Resolved]
  - Drug dose omission [Recovered/Resolved]
